FAERS Safety Report 4613244-0 (Version None)
Quarter: 2005Q1

REPORT INFORMATION
  Report Type: 
  Country: None (occurrence: None)
  Receive Date: 20050315
  Receipt Date: 20050302
  Transmission Date: 20050727
  Serious: Yes (Hospitalization)
  Sender: FDA-Public Use
  Company Number: 2005040463

PATIENT
  Age: 46 Year
  Sex: Female

DRUGS (2)
  1. ZELDOX  (CAPSULES)  (ZIPRASIDONE) [Suspect]
     Indication: SCHIZOPHRENIA, PARANOID TYPE
     Dates: start: 20020101
  2. RISPERDAL [Concomitant]

REACTIONS (2)
  - OROPHARYNGEAL SPASM [None]
  - PARKINSONISM [None]
